FAERS Safety Report 4702213-8 (Version None)
Quarter: 2005Q2

REPORT INFORMATION
  Report Type: 
  Country: None (occurrence: None)
  Receive Date: 20050627
  Receipt Date: 20050127
  Transmission Date: 20051028
  Serious: Yes (Other)
  Sender: FDA-Public Use
  Company Number: 2005021123

PATIENT
  Age: 76 Year
  Sex: Female
  Weight: 61.2356 kg

DRUGS (7)
  1. TOLTERODINE TARTRATE [Suspect]
     Indication: HYPERTONIC BLADDER
     Dosage: 4 MG (4 MG, 1 IN 1 D), ORAL
     Route: 048
  2. METOPROLOL TARTRATE [Concomitant]
  3. SOTALOL HCL [Concomitant]
  4. VALSARTAN [Concomitant]
  5. VITAMIN E [Concomitant]
  6. VITAMINS (VITAMINS) [Concomitant]
  7. FISH OIL (FISH OIL) [Concomitant]

REACTIONS (5)
  - CARDIAC FAILURE [None]
  - CONSTIPATION [None]
  - DIARRHOEA [None]
  - DRUG INEFFECTIVE [None]
  - SCIATICA [None]
